FAERS Safety Report 5010497-4 (Version None)
Quarter: 2006Q2

REPORT INFORMATION
  Report Type: 
  Country: None (occurrence: None)
  Receive Date: 20060525
  Receipt Date: 20051118
  Transmission Date: 20061013
  Serious: No
  Sender: FDA-Public Use
  Company Number: US-GLAXOSMITHKLINE-A0582891A

PATIENT
  Age: 39 Year
  Sex: Female

DRUGS (5)
  1. BACTROBAN [Suspect]
     Dosage: 1APP TWICE PER DAY
     Route: 045
     Dates: start: 20051117, end: 20051117
  2. MAXALT [Concomitant]
  3. SEROQUEL [Concomitant]
  4. DAYPRO [Concomitant]
  5. UNKNOWN MEDICATION [Concomitant]

REACTIONS (3)
  - APPLICATION SITE IRRITATION [None]
  - OFF LABEL USE [None]
  - PAIN [None]
